FAERS Safety Report 20911365 (Version 3)
Quarter: 2022Q2

REPORT INFORMATION
  Report Type: Other
  Country: JP (occurrence: JP)
  Receive Date: 20220603
  Receipt Date: 20220617
  Transmission Date: 20220721
  Serious: Yes (Death, Life-Threatening)
  Sender: FDA-Public Use
  Company Number: JP-CHUGAI-2022020312

PATIENT
  Age: 79 Year
  Sex: Female
  Weight: 36 kg

DRUGS (4)
  1. POLATUZUMAB VEDOTIN [Suspect]
     Active Substance: POLATUZUMAB VEDOTIN
     Indication: Diffuse large B-cell lymphoma
     Dosage: 1.8 MILLIGRAM/KILOGRAM, SINGLE
     Route: 041
     Dates: start: 20211021, end: 20211021
  2. BENDAMUSTINE HYDROCHLORIDE [Concomitant]
     Active Substance: BENDAMUSTINE HYDROCHLORIDE
     Indication: Diffuse large B-cell lymphoma
     Dosage: UNK
     Route: 041
     Dates: start: 20211021, end: 20211022
  3. RITUXIMAB [Concomitant]
     Active Substance: RITUXIMAB
     Indication: Diffuse large B-cell lymphoma
     Dosage: UNK
     Route: 041
     Dates: start: 20211020, end: 20211021
  4. SULFAMETHOXAZOLE\TRIMETHOPRIM [Concomitant]
     Active Substance: SULFAMETHOXAZOLE\TRIMETHOPRIM
     Indication: Infection prophylaxis
     Route: 065

REACTIONS (3)
  - Disease progression [Fatal]
  - Renal failure [Not Recovered/Not Resolved]
  - Tumour lysis syndrome [Not Recovered/Not Resolved]

NARRATIVE: CASE EVENT DATE: 20211022
